FAERS Safety Report 14968787 (Version 2)
Quarter: 2018Q3

REPORT INFORMATION
  Report Type: Spontaneous
  Country: GB (occurrence: GB)
  Receive Date: 20180604
  Receipt Date: 20180713
  Transmission Date: 20181010
  Serious: Yes (Hospitalization)
  Sender: FDA-Public Use
  Company Number: GB-PFIZER INC-2018218603

PATIENT
  Age: 46 Year
  Sex: Female
  Weight: 78 kg

DRUGS (2)
  1. NAPROXEN. [Concomitant]
     Active Substance: NAPROXEN
     Dosage: UNK
  2. SULFASALAZINE. [Suspect]
     Active Substance: SULFASALAZINE
     Indication: RHEUMATOID ARTHRITIS
     Dosage: 2 G, 1X/DAY
     Route: 048
     Dates: start: 20161205, end: 20170105

REACTIONS (21)
  - Hypersensitivity vasculitis [Recovering/Resolving]
  - Nausea [Recovered/Resolved]
  - Skin necrosis [Recovering/Resolving]
  - Liver function test abnormal [Recovered/Resolved]
  - Lymphadenopathy [Recovered/Resolved]
  - Fatigue [Recovered/Resolved]
  - Drug reaction with eosinophilia and systemic symptoms [Unknown]
  - Lymphocytosis [Recovering/Resolving]
  - Rash generalised [Recovering/Resolving]
  - Contusion [Recovered/Resolved with Sequelae]
  - Blister [Recovered/Resolved with Sequelae]
  - Pyrexia [Recovering/Resolving]
  - Hepatic function abnormal [Recovered/Resolved]
  - Swelling face [Recovered/Resolved]
  - Rash pustular [Recovered/Resolved]
  - Scar [Unknown]
  - Skin discolouration [Recovering/Resolving]
  - Inflammation [Unknown]
  - Hypotension [Recovered/Resolved]
  - Headache [Recovered/Resolved]
  - Peripheral swelling [Recovered/Resolved with Sequelae]

NARRATIVE: CASE EVENT DATE: 20170101
